FAERS Safety Report 9159448 (Version 2)
Quarter: 2013Q1

REPORT INFORMATION
  Report Type: Spontaneous
  Country: US (occurrence: US)
  Receive Date: 20130313
  Receipt Date: 20130325
  Transmission Date: 20140127
  Serious: Yes (Hospitalization)
  Sender: FDA-Public Use
  Company Number: PHEH2013US005746

PATIENT
  Age: 73 Year
  Sex: Female
  Weight: 76 kg

DRUGS (3)
  1. AFINITOR [Suspect]
     Indication: BREAST CANCER METASTATIC
     Dosage: 10 MG, QD
     Route: 048
     Dates: start: 20120430, end: 20120522
  2. EXEMESTAN [Concomitant]
     Indication: BREAST CANCER METASTATIC
     Dosage: 25 MG, QD
     Route: 048
     Dates: start: 20120223
  3. WARFARIN [Concomitant]
     Indication: PULMONARY EMBOLISM
     Dosage: 1-5 MG, QD
     Route: 048
     Dates: start: 20100709

REACTIONS (7)
  - Lung disorder [Unknown]
  - Pneumonia [Recovered/Resolved]
  - Lung infiltration [Recovered/Resolved]
  - Asthenia [Recovered/Resolved]
  - Fatigue [Recovered/Resolved]
  - Bedridden [Recovered/Resolved]
  - Dyspnoea [Recovered/Resolved]
